FAERS Safety Report 8318130-0 (Version None)
Quarter: 2012Q2

REPORT INFORMATION
  Report Type: 
  Country: None (occurrence: None)
  Receive Date: 20120427
  Receipt Date: 20120423
  Transmission Date: 20120825
  Serious: Yes (Other)
  Sender: FDA-Public Use
  Company Number: MX-PFIZER INC-2012101151

PATIENT
  Age: 67 Year
  Sex: Female

DRUGS (3)
  1. CELEBREX [Suspect]
     Indication: ARTHRITIS
     Route: 048
  2. CALTRATE 600 [Concomitant]
     Dosage: UNK
     Route: 048
     Dates: start: 20090101
  3. MELOXICAM [Concomitant]
     Indication: MUSCULOSKELETAL PAIN
     Dosage: UNK
     Dates: start: 20111001

REACTIONS (2)
  - DIVERTICULUM INTESTINAL [None]
  - HAEMORRHAGE [None]
